FAERS Safety Report 22376507 (Version 4)
Quarter: 2023Q2

REPORT INFORMATION
  Report Type: Spontaneous
  Country: GR (occurrence: GR)
  Receive Date: 20230528
  Receipt Date: 20230626
  Transmission Date: 20230721
  Serious: Yes (Life-Threatening, Hospitalization, Disabling, Other)
  Sender: FDA-Public Use
  Company Number: GR-MYLANLABS-2023M1051731

PATIENT
  Age: 48 Year
  Sex: Female

DRUGS (5)
  1. MIRTAZAPINE [Suspect]
     Active Substance: MIRTAZAPINE
     Indication: Progressive multifocal leukoencephalopathy
     Dosage: 60 MILLIGRAM, ONCE A DAY ,30 MILLIGRAM, BID
     Route: 048
  2. GILENYA [Suspect]
     Active Substance: FINGOLIMOD HYDROCHLORIDE
     Indication: Relapsing-remitting multiple sclerosis
     Dosage: 0.5 MILLIGRAM, ONCE A DAY (0.5 MG, QD)
     Route: 048
     Dates: start: 20170701, end: 20210615
  3. GILENYA [Suspect]
     Active Substance: FINGOLIMOD HYDROCHLORIDE
     Dosage: UNK(CAPSULE)
     Route: 065
     Dates: start: 2018
  4. FINGOLIMOD [Suspect]
     Active Substance: FINGOLIMOD
     Indication: Relapsing-remitting multiple sclerosis
     Dosage: UNK
     Route: 065
  5. Relief [Concomitant]
     Indication: Product used for unknown indication
     Dosage: 4 UNK
     Route: 048

REACTIONS (8)
  - Progressive multifocal leukoencephalopathy [Recovering/Resolving]
  - Central nervous system immune reconstitution inflammatory response [Recovering/Resolving]
  - JC virus infection [Recovered/Resolved]
  - Epilepsia partialis continua [Recovering/Resolving]
  - Expanded disability status scale score increased [Unknown]
  - Infection reactivation [Recovered/Resolved]
  - Drug ineffective for unapproved indication [Unknown]
  - Off label use [Unknown]

NARRATIVE: CASE EVENT DATE: 20210101
